FAERS Safety Report 8776346 (Version 3)
Quarter: 2012Q4

REPORT INFORMATION
  Report Type: 
  Country: TW (occurrence: TW)
  Receive Date: 20120910
  Receipt Date: 20121025
  Transmission Date: 20130627
  Serious: Yes (Death, Hospitalization)
  Sender: FDA-Public Use
  Company Number: TW-BAYER-2012-090387

PATIENT
  Sex: Male

DRUGS (2)
  1. NEXAVAR [Suspect]
     Indication: CARCINOMA HEPATOCELLULAR
     Dosage: 400 mg, BID
     Dates: start: 20120823
  2. RASBURICASE [Concomitant]
     Indication: TUMOUR LYSIS SYNDROME

REACTIONS (14)
  - Hepatic failure [Fatal]
  - Diarrhoea [None]
  - Vomiting [None]
  - Nausea [None]
  - Fatigue [None]
  - Discomfort [None]
  - Oedema [None]
  - Blood bilirubin increased [None]
  - Aspartate aminotransferase increased [None]
  - Alanine aminotransferase increased [None]
  - Blood creatinine increased [None]
  - Blood sodium abnormal [None]
  - Blood potassium abnormal [None]
  - Blood urea abnormal [None]
